FAERS Safety Report 21054217 (Version 2)
Quarter: 2022Q3

REPORT INFORMATION
  Report Type: Report from Study
  Country: IE (occurrence: IE)
  Receive Date: 20220707
  Receipt Date: 20220708
  Transmission Date: 20221027
  Serious: Yes (Other)
  Sender: FDA-Public Use
  Company Number: IE-MYLANLABS-2022M1050882

PATIENT
  Sex: Female

DRUGS (1)
  1. GLATIRAMER ACETATE [Suspect]
     Active Substance: GLATIRAMER ACETATE
     Indication: Multiple sclerosis
     Dosage: 40 MILLIGRAM, 3XW
     Route: 058
     Dates: start: 20220621

REACTIONS (1)
  - COVID-19 [Not Recovered/Not Resolved]
